FAERS Safety Report 5279116-6 (Version None)
Quarter: 2007Q1

REPORT INFORMATION
  Report Type: 
  Country: None (occurrence: None)
  Receive Date: 20061208
  Receipt Date: 20050531
  Transmission Date: 20070707
  Serious: No
  Sender: FDA-Public Use
  Company Number: 2005UW08443

PATIENT
  Age: 79 Year
  Sex: Female

DRUGS (9)
  1. CRESTOR [Suspect]
     Dosage: 10 MG QD PO
     Route: 048
  2. LOPID [Concomitant]
  3. LASIX [Concomitant]
  4. METFORMIN HCL [Concomitant]
  5. PEPCID [Concomitant]
  6. AVANDIA [Concomitant]
  7. DILTIAZEM [Concomitant]
  8. LISINOPRIL [Concomitant]
  9. COUMADIN [Concomitant]

REACTIONS (1)
  - BLOOD CREATININE INCREASED [None]
